FAERS Safety Report 23221894 (Version 3)
Quarter: 2024Q1

REPORT INFORMATION
  Report Type: Report from Study
  Country: US (occurrence: US)
  Receive Date: 20231123
  Receipt Date: 20240214
  Transmission Date: 20240410
  Serious: Yes (Hospitalization)
  Sender: FDA-Public Use
  Company Number: US-DAIICHI SANKYO, INC.-DSU-2023-145008AA

PATIENT
  Age: 53 Year
  Sex: Female
  Weight: 58.503 kg

DRUGS (5)
  1. PEXIDARTINIB [Suspect]
     Active Substance: PEXIDARTINIB
     Indication: Connective tissue neoplasm
     Dosage: 250 MG, BID
     Route: 048
     Dates: start: 20231017, end: 20231031
  2. PEXIDARTINIB [Suspect]
     Active Substance: PEXIDARTINIB
     Indication: Soft tissue neoplasm
  3. PEXIDARTINIB [Suspect]
     Active Substance: PEXIDARTINIB
     Indication: Liver function test increased
  4. LISINOPRIL [Concomitant]
     Active Substance: LISINOPRIL
     Indication: Hypertension
     Dosage: 10 MG, QD
     Route: 065
  5. CELEBREX [Concomitant]
     Active Substance: CELECOXIB
     Indication: Arthralgia
     Dosage: 200 MG, BID
     Route: 065

REACTIONS (25)
  - Urinary tract infection [Unknown]
  - Colitis [Recovered/Resolved]
  - Drug-induced liver injury [Unknown]
  - Feeling cold [Recovered/Resolved]
  - Chills [Recovered/Resolved]
  - Throat irritation [Recovered/Resolved]
  - Ear pain [Recovered/Resolved]
  - Nephropathy [Recovered/Resolved]
  - Headache [Recovered/Resolved]
  - Infection [Recovered/Resolved]
  - Dizziness postural [Recovered/Resolved]
  - Arthralgia [Recovered/Resolved]
  - Pain in extremity [Recovered/Resolved]
  - Neck pain [Recovered/Resolved]
  - Joint swelling [Recovered/Resolved]
  - Laboratory test abnormal [Recovered/Resolved]
  - Liver function test decreased [Recovered/Resolved]
  - Malaise [Recovered/Resolved]
  - Alanine aminotransferase increased [Recovered/Resolved]
  - Nausea [Recovered/Resolved]
  - Aspartate aminotransferase increased [Recovered/Resolved]
  - Fatigue [Recovered/Resolved]
  - Hypertransaminasaemia [Recovered/Resolved]
  - Therapy cessation [Unknown]
  - Off label use [Recovered/Resolved]

NARRATIVE: CASE EVENT DATE: 20231017
